FAERS Safety Report 14528652 (Version 4)
Quarter: 2018Q1

REPORT INFORMATION
  Report Type: Report from Study
  Country: None (occurrence: ES)
  Receive Date: 20180214
  Receipt Date: 20180328
  Transmission Date: 20180509
  Serious: Yes (Hospitalization)
  Sender: FDA-Public Use
  Company Number: ES-ABBVIE-17K-144-2169702-00

PATIENT
  Age: 84 Year
  Sex: Male

DRUGS (12)
  1. AMANTADINE. [Suspect]
     Active Substance: AMANTADINE HYDROCHLORIDE
     Indication: PRODUCT USED FOR UNKNOWN INDICATION
     Route: 065
  2. DUODOPA [Suspect]
     Active Substance: CARBIDOPA\LEVODOPA
     Indication: PARKINSON^S DISEASE
     Dosage: MORNING DOSE: 11ML
     Route: 050
     Dates: start: 20080529, end: 20180115
  3. DUODOPA [Suspect]
     Active Substance: CARBIDOPA\LEVODOPA
     Dosage: MORNING DOSE: 8 ML, CONTINUOUS DOSE: 5 ML, EXTRA DOSE: 4 ML
     Route: 050
     Dates: start: 2018
  4. DUODOPA [Suspect]
     Active Substance: CARBIDOPA\LEVODOPA
     Dosage: MORNING DOSE: 9.5ML
     Route: 050
     Dates: start: 20180115, end: 201801
  5. DUODOPA [Suspect]
     Active Substance: CARBIDOPA\LEVODOPA
     Route: 050
     Dates: start: 201801, end: 2018
  6. ALPRAZOLAM. [Concomitant]
     Active Substance: ALPRAZOLAM
     Indication: PRODUCT USED FOR UNKNOWN INDICATION
  7. DUODOPA [Suspect]
     Active Substance: CARBIDOPA\LEVODOPA
     Dosage: MORNING DOSE: 1.5ML/H
     Route: 050
     Dates: start: 20180202, end: 2018
  8. MIRTAZAPINE. [Concomitant]
     Active Substance: MIRTAZAPINE
     Indication: PRODUCT USED FOR UNKNOWN INDICATION
  9. ESCITALOPRAM [Concomitant]
     Active Substance: ESCITALOPRAM OXALATE
     Indication: PRODUCT USED FOR UNKNOWN INDICATION
     Dosage: IN THE MORNING
  10. EXELON [Concomitant]
     Active Substance: RIVASTIGMINE TARTRATE
     Indication: PRODUCT USED FOR UNKNOWN INDICATION
     Route: 048
  11. HALOPERIDOL. [Suspect]
     Active Substance: HALOPERIDOL
     Indication: PRODUCT USED FOR UNKNOWN INDICATION
     Dosage: DROPS FORMULATION AT NIGHT
     Route: 030
     Dates: start: 20180205, end: 20180205
  12. LORAZEPAM. [Concomitant]
     Active Substance: LORAZEPAM
     Indication: PRODUCT USED FOR UNKNOWN INDICATION

REACTIONS (23)
  - Decreased appetite [Unknown]
  - Increased bronchial secretion [Recovering/Resolving]
  - On and off phenomenon [Recovering/Resolving]
  - Panic attack [Not Recovered/Not Resolved]
  - Somnolence [Recovered/Resolved]
  - Dyskinesia [Recovering/Resolving]
  - On and off phenomenon [Recovered/Resolved]
  - Panic reaction [Recovered/Resolved]
  - Choking sensation [Recovered/Resolved]
  - Pyrexia [Recovered/Resolved]
  - Device issue [Unknown]
  - Wrong technique in device usage process [Unknown]
  - Hallucination, visual [Recovered/Resolved]
  - Somnolence [Unknown]
  - Disorientation [Unknown]
  - Infection [Unknown]
  - Anaemia [Unknown]
  - On and off phenomenon [Recovered/Resolved]
  - Parkinson^s disease [Recovering/Resolving]
  - Obsessive-compulsive disorder [Recovering/Resolving]
  - Disorientation [Recovered/Resolved]
  - Pyrexia [Recovering/Resolving]
  - Anxiety [Not Recovered/Not Resolved]

NARRATIVE: CASE EVENT DATE: 201710
